FAERS Safety Report 5454019-2 (Version None)
Quarter: 2007Q3

REPORT INFORMATION
  Report Type: 
  Country: None (occurrence: None)
  Receive Date: 20070917
  Receipt Date: 20070228
  Transmission Date: 20080115
  Serious: Yes (Hospitalization)
  Sender: FDA-Public Use
  Company Number: US-ASTRAZENECA-2006UW04688

PATIENT
  Age: 385 Month
  Sex: Female
  Weight: 101.4 kg

DRUGS (8)
  1. SEROQUEL [Suspect]
     Indication: BIPOLAR DISORDER
     Dosage: APPROXIMATELY 25 TO 50 MG
     Route: 048
     Dates: start: 20040401, end: 20050201
  2. SEROQUEL [Suspect]
     Indication: SCHIZOPHRENIA
     Dosage: APPROXIMATELY 25 TO 50 MG
     Route: 048
     Dates: start: 20040401, end: 20050201
  3. SEROQUEL [Suspect]
     Dosage: APPROXIMATELY 200 TO 800 MG
     Route: 048
     Dates: start: 20050201, end: 20050701
  4. SEROQUEL [Suspect]
     Dosage: APPROXIMATELY 200 TO 800 MG
     Route: 048
     Dates: start: 20050201, end: 20050701
  5. ABILIFY [Suspect]
     Dates: start: 20041101, end: 20050701
  6. ZYPREXA [Suspect]
     Dosage: APPROXIMATELY 5 TO 10 MG
     Dates: start: 20040701, end: 20050201
  7. RISPERDAL [Suspect]
     Dates: start: 20040101
  8. GEODON [Suspect]
     Dates: start: 20040101

REACTIONS (5)
  - BLOOD CHOLESTEROL INCREASED [None]
  - DIABETES MELLITUS [None]
  - HYPERLIPIDAEMIA [None]
  - OBESITY [None]
  - SCHIZOPHRENIA [None]
